FAERS Safety Report 7654000-9 (Version None)
Quarter: 2011Q3

REPORT INFORMATION
  Report Type: 
  Country: None (occurrence: None)
  Receive Date: 20110803
  Receipt Date: 20110721
  Transmission Date: 20111222
  Serious: Yes (Hospitalization)
  Sender: FDA-Public Use
  Company Number: PHHO2011DE12531

PATIENT
  Sex: Male
  Weight: 95 kg

DRUGS (5)
  1. BLINDED ALISKIREN [Suspect]
     Indication: CARDIAC FAILURE
     Dosage: CODE NOT BROKEN
  2. ALISKIREN [Suspect]
     Indication: CARDIAC FAILURE
  3. ENALAPRIL MALEATE [Suspect]
     Indication: CARDIAC FAILURE
     Dosage: CODE NOT BROKEN
  4. BLINDED NO TREATMENT RECEIVED [Suspect]
     Indication: CARDIAC FAILURE
     Dosage: CODE NOT BROKEN
  5. ENALAPRIL MALEATE [Suspect]
     Indication: CARDIAC FAILURE

REACTIONS (1)
  - ARRHYTHMIA [None]
